FAERS Safety Report 8579078-X (Version None)
Quarter: 2012Q3

REPORT INFORMATION
  Report Type: 
  Country: None (occurrence: None)
  Receive Date: 20120726
  Receipt Date: 20120710
  Transmission Date: 20120928
  Serious: Yes (Death)
  Sender: FDA-Public Use
  Company Number: ACCP20120002

PATIENT
  Age: 5 Year
  Sex: Male
  Weight: 29 kg

DRUGS (1)
  1. ACETAMINOPHEN AND CODEINE PHOSPHATE [Suspect]
     Indication: ANALGESIC THERAPY
     Dosage: 72 MG, 12MG CODEINE EVERY 4 HOURS

REACTIONS (1)
  - TOXICITY TO VARIOUS AGENTS [None]
